FAERS Safety Report 8590335-3 (Version None)
Quarter: 2012Q3

REPORT INFORMATION
  Report Type: 
  Country: None (occurrence: None)
  Receive Date: 20120813
  Receipt Date: 20120806
  Transmission Date: 20120928
  Serious: Yes (Disabling, Other)
  Sender: FDA-Public Use
  Company Number: US-JNJFOC-20120804209

PATIENT
  Age: 43 Year
  Sex: Female

DRUGS (2)
  1. REMICADE [Suspect]
     Indication: PRODUCT USED FOR UNKNOWN INDICATION
     Route: 042
     Dates: start: 20030101
  2. REMICADE [Suspect]
     Route: 042

REACTIONS (3)
  - VEIN DISORDER [None]
  - DRUG DEPENDENCE [None]
  - MYOCARDIAL INFARCTION [None]
